FAERS Safety Report 18526187 (Version 1)
Quarter: 2020Q4

REPORT INFORMATION
  Report Type: Spontaneous
  Country: US (occurrence: US)
  Receive Date: 20201119
  Receipt Date: 20201119
  Transmission Date: 20210114
  Serious: No
  Sender: FDA-Public Use
  Company Number: None

PATIENT
  Age: 59 Year
  Sex: Female
  Weight: 84.82 kg

DRUGS (2)
  1. COSENTYX [Suspect]
     Active Substance: SECUKINUMAB
     Indication: ANKYLOSING SPONDYLITIS
     Dosage: INJECT 150MG (1 PEN) SUBCUTANEOUSLY EVERY WEEK FOR 5 WEEKS  AS DIRECTED
     Route: 058
     Dates: start: 201909
  2. COSENTYX [Suspect]
     Active Substance: SECUKINUMAB
     Indication: RHEUMATOID ARTHRITIS
     Dosage: INJECT 150MG (1 PEN) SUBCUTANEOUSLY EVERY WEEK FOR 5 WEEKS  AS DIRECTED
     Route: 058
     Dates: start: 201909

REACTIONS (2)
  - COVID-19 [None]
  - Therapy interrupted [None]
